FAERS Safety Report 9490530 (Version 1)
Quarter: 2013Q3

REPORT INFORMATION
  Report Type: Spontaneous
  Country: US (occurrence: None)
  Receive Date: 20130826
  Receipt Date: 20130826
  Transmission Date: 20140515
  Serious: Yes (Death, Hospitalization)
  Sender: FDA-Public Use
  Company Number: 150475

PATIENT
  Age: 46 Year
  Sex: Female

DRUGS (1)
  1. ADRIAMYCIN [Suspect]
     Indication: NON-HODGKIN^S LYMPHOMA

REACTIONS (2)
  - Hepatitis B [None]
  - General physical health deterioration [None]
